FAERS Safety Report 9443816 (Version 2)
Quarter: 2013Q3

REPORT INFORMATION
  Report Type: Spontaneous
  Country: BR (occurrence: BR)
  Receive Date: 20130806
  Receipt Date: 20130820
  Transmission Date: 20140515
  Serious: Yes (Hospitalization)
  Sender: FDA-Public Use
  Company Number: BR-B.I. PHARMACEUTICALS,INC./RIDGEFIELD-2013-BR-00892BR

PATIENT
  Age: 80 Year
  Sex: Male

DRUGS (7)
  1. PRADAXA [Suspect]
     Indication: CEREBROVASCULAR ACCIDENT PROPHYLAXIS
     Dosage: 220 MG
     Route: 048
     Dates: start: 201205, end: 20130414
  2. PRADAXA [Suspect]
     Indication: ATRIAL FIBRILLATION
  3. CLEXANE [Suspect]
     Indication: DEEP VEIN THROMBOSIS
  4. CLEXANE [Suspect]
     Indication: PULMONARY EMBOLISM
  5. LOSARTANA [Concomitant]
     Indication: HYPERTENSION
  6. METFORMINA [Concomitant]
     Indication: HYPERTENSION
     Dosage: 1700 MG
  7. HYDROCHLOROTHIAZID [Concomitant]
     Indication: HYPERTENSION

REACTIONS (14)
  - Pyrexia [Recovered/Resolved]
  - Malaise [Recovered/Resolved]
  - Back pain [Recovered/Resolved]
  - Palpatory finding abnormal [Recovered/Resolved]
  - Blood pressure decreased [Recovered/Resolved]
  - Palpatory finding abnormal [Recovered/Resolved]
  - Septic shock [Recovered/Resolved]
  - Renal abscess [Recovered/Resolved]
  - Perirenal haematoma [Recovered/Resolved]
  - Respiratory disorder [Recovered/Resolved]
  - Chest pain [Recovered/Resolved]
  - Pulmonary embolism [Recovered/Resolved]
  - Deep vein thrombosis [Recovered/Resolved]
  - Thrombocytopenia [Recovered/Resolved]
